FAERS Safety Report 5753387-1 (Version None)
Quarter: 2008Q2

REPORT INFORMATION
  Report Type: 
  Country: None (occurrence: None)
  Receive Date: 20080527
  Receipt Date: 20080513
  Transmission Date: 20081010
  Serious: Yes (Hospitalization)
  Sender: FDA-Public Use
  Company Number: 2008-176995-NL

PATIENT
  Age: 25 Year
  Sex: Female

DRUGS (1)
  1. NUVARING [Suspect]
     Dosage: DF
     Route: 067

REACTIONS (5)
  - BLOOD PRESSURE INCREASED [None]
  - CARDIAC DISORDER [None]
  - HEADACHE [None]
  - HEART RATE IRREGULAR [None]
  - TACHYCARDIA [None]
